FAERS Safety Report 7045015-2 (Version None)
Quarter: 2010Q4

REPORT INFORMATION
  Report Type: 
  Country: None (occurrence: None)
  Receive Date: 20101014
  Receipt Date: 20101005
  Transmission Date: 20110411
  Serious: Yes (Hospitalization, Other)
  Sender: FDA-Public Use
  Company Number: KR-BAYER-201017744GPV

PATIENT
  Age: 42 Year
  Sex: Male
  Weight: 62 kg

DRUGS (34)
  1. SORAFENIB [Suspect]
     Indication: HEPATIC NEOPLASM MALIGNANT
     Dosage: TOTAL DAILY DOSE: 800 MG  UNIT DOSE: 200 MG
     Route: 048
     Dates: start: 20100210, end: 20100219
  2. SORAFENIB [Suspect]
     Route: 048
     Dates: start: 20100226, end: 20100302
  3. SORAFENIB [Suspect]
     Dosage: TOTAL DAILY DOSE: 800 MG  UNIT DOSE: 200 MG
     Route: 048
     Dates: start: 20100122, end: 20100210
  4. SORAFENIB [Suspect]
     Dosage: TOTAL DAILY DOSE: 400 MG  UNIT DOSE: 200 MG
     Route: 048
     Dates: start: 20100219, end: 20100226
  5. ERLOTINIB OR PLACEBO [Suspect]
     Indication: HEPATIC NEOPLASM MALIGNANT
     Route: 048
     Dates: start: 20100226, end: 20100302
  6. ERLOTINIB OR PLACEBO [Suspect]
     Route: 048
     Dates: start: 20100219, end: 20100226
  7. ERLOTINIB OR PLACEBO [Suspect]
     Route: 048
     Dates: start: 20100122, end: 20100210
  8. ERLOTINIB OR PLACEBO [Suspect]
     Route: 048
     Dates: start: 20100211, end: 20100219
  9. FENTANYL [Concomitant]
     Indication: ABDOMINAL PAIN
     Route: 023
     Dates: start: 20091210
  10. FENTANYL [Concomitant]
     Route: 062
     Dates: start: 20091210
  11. BEECOM [Concomitant]
     Indication: VITAMIN SUPPLEMENTATION
     Route: 048
     Dates: start: 20091230
  12. HEXAMEDIN [Concomitant]
     Indication: STERILISATION
     Dates: start: 20100122
  13. HYDROSON [Concomitant]
     Indication: PALMAR-PLANTAR ERYTHRODYSAESTHESIA SYNDROME
     Route: 061
     Dates: start: 20100122
  14. JEFFIX [Concomitant]
     Indication: HEPATITIS
     Route: 048
     Dates: start: 20100115
  15. LOPERAMIDE [Concomitant]
     Indication: DIARRHOEA
     Route: 048
     Dates: start: 20100122, end: 20100302
  16. SILYMARIN [Concomitant]
     Indication: HEPATITIS
     Route: 048
     Dates: start: 20091207
  17. URSA [Concomitant]
     Indication: HEPATITIS
     Route: 048
     Dates: start: 20091207
  18. SACCHAROMYCES [Concomitant]
     Indication: DIARRHOEA
     Route: 048
     Dates: start: 20100210, end: 20100219
  19. FURIX [Concomitant]
     Indication: ASCITES
     Route: 048
     Dates: start: 20100227
  20. FURIX [Concomitant]
     Route: 048
     Dates: start: 20100219, end: 20100226
  21. DEXTROSE 5% [Concomitant]
     Indication: ELECTROLYTE SUBSTITUTION THERAPY
     Route: 042
     Dates: start: 20100304, end: 20100304
  22. DEXTROSE 5% [Concomitant]
     Route: 042
     Dates: start: 20100228, end: 20100306
  23. SPRIONOLACTONE [Concomitant]
     Indication: ASCITES
     Route: 048
     Dates: start: 20100301, end: 20100303
  24. SPRIONOLACTONE [Concomitant]
     Route: 048
     Dates: start: 20100307, end: 20100307
  25. SPRIONOLACTONE [Concomitant]
     Route: 048
     Dates: start: 20100308
  26. DEXTROSE + NAK2 [Concomitant]
     Indication: PROPHYLAXIS
     Dates: start: 20100304, end: 20100304
  27. MORPHIN HCL [Concomitant]
     Indication: ABDOMINAL PAIN
     Route: 048
     Dates: start: 20100304, end: 20100304
  28. MORPHIN HCL [Concomitant]
     Route: 048
     Dates: start: 20100309
  29. DEXTROSE 50% [Concomitant]
     Indication: HYPERKALAEMIA
     Route: 042
     Dates: start: 20100315, end: 20100315
  30. DEXTROSE 50% [Concomitant]
     Route: 042
     Dates: start: 20100315, end: 20100315
  31. HUMALOG [Concomitant]
     Indication: HYPERKALAEMIA
     Route: 042
     Dates: start: 20100315, end: 20100315
  32. CALCIUM GLUCONATE [Concomitant]
     Indication: HYPERKALAEMIA
     Route: 042
     Dates: start: 20100315, end: 20100315
  33. LAMIVUDINE [Concomitant]
     Indication: ANTIVIRAL PROPHYLAXIS
     Route: 048
     Dates: start: 20100115
  34. UDCA [Concomitant]
     Indication: HEPATITIS
     Route: 048
     Dates: start: 20091207

REACTIONS (2)
  - ASCITES [None]
  - PLEURAL EFFUSION [None]
